FAERS Safety Report 5678499-2 (Version None)
Quarter: 2008Q1

REPORT INFORMATION
  Report Type: 
  Country: None (occurrence: None)
  Receive Date: 20080325
  Receipt Date: 20080317
  Transmission Date: 20080703
  Serious: Yes (Other)
  Sender: FDA-Public Use
  Company Number: US-TYCO HEALTHCARE/MALLINCKRODT-T200800279

PATIENT

DRUGS (2)
  1. ULTRA-TECHNEKOW [Suspect]
     Indication: RADIOISOTOPE SCAN
     Dosage: 5.3 MCI, SINGLE
     Route: 042
     Dates: start: 20080213, end: 20080213
  2. TECHNETIUM SULFIDE TC 99M COLLOID [Suspect]
     Indication: RADIOISOTOPE SCAN
     Dosage: UNK, SINGLE
     Route: 042
     Dates: start: 20080213, end: 20080213

REACTIONS (7)
  - ANXIETY [None]
  - ERYTHEMA [None]
  - EYELID OEDEMA [None]
  - FEELING ABNORMAL [None]
  - LOSS OF CONSCIOUSNESS [None]
  - PRURITUS [None]
  - URTICARIA [None]
